FAERS Safety Report 23656269 (Version 1)
Quarter: 2024Q1

REPORT INFORMATION
  Report Type: Spontaneous
  Country: US (occurrence: US)
  Receive Date: 20240321
  Receipt Date: 20240321
  Transmission Date: 20240410
  Serious: No
  Sender: FDA-Public Use
  Company Number: US-JNJFOC-20240358244

PATIENT

DRUGS (1)
  1. UPTRAVI [Suspect]
     Active Substance: SELEXIPAG
     Indication: Product used for unknown indication
     Dosage: DOSE:600(UNSPECIFIED UNITS)
     Route: 048

REACTIONS (4)
  - Nausea [Unknown]
  - Pain in jaw [Unknown]
  - Dizziness [Unknown]
  - Fatigue [Unknown]
